FAERS Safety Report 5509189-4 (Version None)
Quarter: 2007Q4

REPORT INFORMATION
  Report Type: 
  Country: None (occurrence: None)
  Receive Date: 20071031
  Receipt Date: 20070625
  Transmission Date: 20080405
  Serious: No
  Sender: FDA-Public Use
  Company Number: 2007PV033063

PATIENT
  Age: 66 Year
  Sex: Female
  Weight: 110.6777 kg

DRUGS (6)
  1. SYMLIN [Suspect]
     Indication: TYPE 2 DIABETES MELLITUS
     Dosage: 120 MCG;BID;SC  120 MCG;QD;SC   60 MCG;QD;SC   60 MCG;SC
     Route: 058
     Dates: start: 20060701, end: 20060701
  2. SYMLIN [Suspect]
     Indication: TYPE 2 DIABETES MELLITUS
     Dosage: 120 MCG;BID;SC  120 MCG;QD;SC   60 MCG;QD;SC   60 MCG;SC
     Route: 058
     Dates: start: 20070622, end: 20070622
  3. SYMLIN [Suspect]
     Indication: TYPE 2 DIABETES MELLITUS
     Dosage: 120 MCG;BID;SC  120 MCG;QD;SC   60 MCG;QD;SC   60 MCG;SC
     Route: 058
     Dates: start: 20070622, end: 20070622
  4. SYMLIN [Suspect]
     Indication: TYPE 2 DIABETES MELLITUS
     Dosage: 120 MCG;BID;SC  120 MCG;QD;SC   60 MCG;QD;SC   60 MCG;SC
     Route: 058
     Dates: start: 20070623, end: 20070624
  5. NOVOLIN 70/30 [Concomitant]
  6. LOPRESSOR [Concomitant]

REACTIONS (7)
  - ASTHENIA [None]
  - BLOOD GLUCOSE INCREASED [None]
  - DRUG EFFECT DECREASED [None]
  - ENERGY INCREASED [None]
  - FALL [None]
  - FATIGUE [None]
  - HEART RATE INCREASED [None]
